FAERS Safety Report 10236164 (Version 1)
Quarter: 2014Q2

REPORT INFORMATION
  Report Type: Spontaneous
  Country: US (occurrence: None)
  Receive Date: 20140612
  Receipt Date: 20140612
  Transmission Date: 20141212
  Serious: Yes (Hospitalization)
  Sender: FDA-Public Use
  Company Number: None

PATIENT
  Age: 94 Year
  Sex: Female
  Weight: 77 kg

DRUGS (13)
  1. XARELTO 15MG [Suspect]
     Indication: TRANSIENT ISCHAEMIC ATTACK
     Dosage: 1 TABLET QD ORAL
     Route: 048
     Dates: end: 20140114
  2. XARELTO 15MG [Suspect]
     Indication: CEREBROVASCULAR ACCIDENT
     Dosage: 1 TABLET QD ORAL
     Route: 048
     Dates: end: 20140114
  3. APRESOLINE [Concomitant]
  4. BENICAR [Concomitant]
  5. KLOR-CON (K-TAB) [Concomitant]
  6. LOPRESSOR [Concomitant]
  7. MAG-TAB SR [Concomitant]
  8. PROTONIX [Concomitant]
  9. SYNTHROID [Concomitant]
  10. VITAMIN ^B-12^ [Concomitant]
  11. ASPIRIN [Concomitant]
  12. MACRODANTIN [Concomitant]
  13. PEPCID [Concomitant]

REACTIONS (1)
  - Gastrointestinal haemorrhage [None]
